FAERS Safety Report 7256463-X (Version None)
Quarter: 2011Q1

REPORT INFORMATION
  Report Type: 
  Country: None (occurrence: None)
  Receive Date: 20110129
  Receipt Date: 20100805
  Transmission Date: 20110831
  Serious: No
  Sender: FDA-Public Use
  Company Number: US-ABBOTT-10P-163-0661755-00

PATIENT
  Age: 74 Year
  Sex: Female

DRUGS (8)
  1. SPIRONOLACTONE [Concomitant]
     Indication: BLOOD PRESSURE
  2. SIMVASTATIN [Concomitant]
     Indication: BLOOD CHOLESTEROL
  3. HUMIRA [Suspect]
     Indication: PSORIASIS
     Dates: start: 20100401
  4. CELEBREX [Concomitant]
     Indication: ARTHRITIS
  5. ALENDRONATE SODIUM [Concomitant]
     Indication: BONE DISORDER
  6. LISINOPRIL [Concomitant]
     Indication: BLOOD PRESSURE
  7. FOLIC ACID [Concomitant]
     Indication: PRODUCT USED FOR UNKNOWN INDICATION
  8. METHOTREXATE [Concomitant]
     Indication: PSORIASIS

REACTIONS (2)
  - INJECTION SITE HAEMORRHAGE [None]
  - INJECTION SITE HAEMATOMA [None]
